FAERS Safety Report 19736214 (Version 1)
Quarter: 2021Q3

REPORT INFORMATION
  Report Type: Spontaneous
  Country: DE (occurrence: DE)
  Receive Date: 20210823
  Receipt Date: 20210823
  Transmission Date: 20211014
  Serious: Yes (Hospitalization, Other)
  Sender: FDA-Public Use
  Company Number: DE-MYLANLABS-2021M1053199

PATIENT
  Age: 77 Year
  Sex: Male

DRUGS (8)
  1. METOPROLOL. [Concomitant]
     Active Substance: METOPROLOL
     Dosage: 95 MG, 1?0?0.5?0, RETARD?TABLETTEN
     Route: 065
  2. TORASEMID [Concomitant]
     Active Substance: TORSEMIDE
     Dosage: 20 MG, 1?0?0?0, TABLET
     Route: 065
  3. RAMIPRIL. [Concomitant]
     Active Substance: RAMIPRIL
     Dosage: 5 MG, 0.5?0?0?0, TABLET
     Route: 065
  4. ATORVASTATIN [Concomitant]
     Active Substance: ATORVASTATIN
     Dosage: 40 MG, 0?0?1?0, TABLET
     Route: 065
  5. AMIODARONE [Suspect]
     Active Substance: AMIODARONE
     Indication: PRODUCT USED FOR UNKNOWN INDICATION
     Dosage: 200 MILLIGRAM
     Dates: end: 202008
  6. ALLOPURINOL. [Concomitant]
     Active Substance: ALLOPURINOL
     Dosage: 100 MG, 0?0?1?0, TABLET
     Route: 065
  7. METAMIZOL                          /06276701/ [Concomitant]
     Active Substance: METAMIZOLE
     Dosage: 30 GTT IF NEEDED UP TO 4X, DROPS, TROPFEN
     Route: 065
  8. EDOXABAN [Concomitant]
     Active Substance: EDOXABAN TOSYLATE
     Dosage: 60 MG, 1?0?0?0, TABLET
     Route: 065

REACTIONS (3)
  - Dyspnoea exertional [Unknown]
  - Condition aggravated [Unknown]
  - Hypothyroidism [Unknown]
